FAERS Safety Report 6847566-X (Version None)
Quarter: 2010Q3

REPORT INFORMATION
  Report Type: 
  Country: None (occurrence: None)
  Receive Date: 20100716
  Receipt Date: 20100707
  Transmission Date: 20110219
  Serious: Yes (Other)
  Sender: FDA-Public Use
  Company Number: US-PFIZER INC-2008032325

PATIENT
  Sex: Male
  Weight: 77 kg

DRUGS (4)
  1. CHANTIX [Suspect]
     Indication: SMOKING CESSATION THERAPY
     Dosage: 0.5 MG, 1X/DAY
     Route: 048
     Dates: start: 20070626
  2. CHANTIX [Suspect]
     Indication: TOBACCO ABUSE
     Dosage: 0.5 MG, 2X/DAY
     Route: 048
     Dates: start: 20070601
  3. CHANTIX [Suspect]
     Dosage: 1 MG, 2X/DAY
     Route: 048
     Dates: start: 20070601
  4. SYNTHROID [Concomitant]
     Indication: BASEDOW'S DISEASE
     Dosage: 137 MG, DAILY
     Route: 048

REACTIONS (26)
  - ABDOMINAL PAIN [None]
  - AMNESIA [None]
  - ANXIETY [None]
  - CHILLS [None]
  - CHOLELITHIASIS [None]
  - DECREASED APPETITE [None]
  - DEMENTIA ALZHEIMER'S TYPE [None]
  - DEPRESSION [None]
  - DISORIENTATION [None]
  - FATIGUE [None]
  - FEELING ABNORMAL [None]
  - GASTRITIS [None]
  - HAEMORRHOIDS [None]
  - HERPES ZOSTER [None]
  - HIATUS HERNIA [None]
  - IMPAIRED WORK ABILITY [None]
  - INSOMNIA [None]
  - MALAISE [None]
  - MOOD SWINGS [None]
  - NAUSEA [None]
  - RASH [None]
  - SCREAMING [None]
  - SUICIDAL IDEATION [None]
  - VOMITING [None]
  - WEIGHT DECREASED [None]
  - WEIGHT INCREASED [None]
